FAERS Safety Report 6847002-3 (Version None)
Quarter: 2010Q3

REPORT INFORMATION
  Report Type: 
  Country: None (occurrence: None)
  Receive Date: 20100716
  Receipt Date: 20100702
  Transmission Date: 20110219
  Serious: Yes (Other)
  Sender: FDA-Public Use
  Company Number: IT-PAR PHARMACEUTICAL, INC-2010SCPR001391

PATIENT

DRUGS (2)
  1. RISPERIDONE [Suspect]
     Indication: PSYCHOTIC DISORDER
     Dosage: 0.5 MG, QD
     Route: 065
  2. RISPERIDONE [Suspect]
     Indication: AGGRESSION

REACTIONS (4)
  - DUODENITIS [None]
  - GASTROOESOPHAGEAL REFLUX DISEASE [None]
  - HYPERPROLACTINAEMIA [None]
  - OESOPHAGITIS [None]
